FAERS Safety Report 5821457-5 (Version None)
Quarter: 2008Q3

REPORT INFORMATION
  Report Type: 
  Country: None (occurrence: None)
  Receive Date: 20080724
  Receipt Date: 20080721
  Transmission Date: 20090109
  Serious: Yes (Death, Hospitalization)
  Sender: FDA-Public Use
  Company Number: B0515575A

PATIENT
  Age: 68 Year
  Sex: Male

DRUGS (13)
  1. FORTUM [Suspect]
     Indication: SEPSIS
     Dosage: 6G PER DAY
     Route: 042
     Dates: start: 20071018, end: 20071103
  2. VFEND [Suspect]
     Indication: SEPSIS
     Route: 048
     Dates: start: 20070927, end: 20071112
  3. COLIMYCINE [Suspect]
     Indication: SEPSIS
     Dosage: 10MU THREE TIMES PER DAY
     Dates: start: 20071017, end: 20071112
  4. PAROXETINE HCL [Concomitant]
     Indication: DRUG USE FOR UNKNOWN INDICATION
     Route: 065
  5. PREVISCAN [Concomitant]
     Indication: DRUG USE FOR UNKNOWN INDICATION
     Dosage: 20MG PER DAY
     Route: 048
  6. LEVOTHYROXINE SODIUM [Concomitant]
     Indication: DRUG USE FOR UNKNOWN INDICATION
     Route: 065
  7. TENORMIN [Concomitant]
     Indication: DRUG USE FOR UNKNOWN INDICATION
     Dosage: 25MG THREE TIMES PER DAY
     Route: 048
  8. TAREG [Concomitant]
     Indication: DRUG USE FOR UNKNOWN INDICATION
     Dosage: 40MG PER DAY
     Route: 048
  9. ALDACTONE [Concomitant]
     Indication: DRUG USE FOR UNKNOWN INDICATION
     Dosage: 25MG PER DAY
     Route: 048
  10. NICARDIPINE HCL [Concomitant]
     Indication: DRUG USE FOR UNKNOWN INDICATION
     Route: 048
  11. VANCOMYCIN HCL [Concomitant]
     Indication: SEPSIS
     Route: 065
  12. TIENAM [Concomitant]
     Indication: SEPSIS
     Route: 065
  13. GENTALLINE [Concomitant]
     Indication: SEPSIS
     Route: 065

REACTIONS (12)
  - AGITATION [None]
  - CIRCULATORY COLLAPSE [None]
  - HAEMODYNAMIC INSTABILITY [None]
  - HYPOGLYCAEMIA [None]
  - HYPOMAGNESAEMIA [None]
  - HYPOTENSION [None]
  - PIGMENTATION DISORDER [None]
  - PSEUDOMONAS INFECTION [None]
  - SEPTIC SHOCK [None]
  - SHOCK [None]
  - SOMNOLENCE [None]
  - STATUS EPILEPTICUS [None]
